FAERS Safety Report 5880627-0 (Version None)
Quarter: 2008Q3

REPORT INFORMATION
  Report Type: 
  Country: None (occurrence: None)
  Receive Date: 20080912
  Receipt Date: 20080908
  Transmission Date: 20090109
  Serious: Yes (Hospitalization, Other)
  Sender: FDA-Public Use
  Company Number: PT-GILEAD-2008-0018063

PATIENT
  Age: 73 Year
  Weight: 55.5 kg

DRUGS (3)
  1. TRUVADA [Suspect]
     Indication: HIV INFECTION
     Route: 048
     Dates: start: 20080805, end: 20080816
  2. TRUVADA [Suspect]
     Route: 048
     Dates: start: 20080816, end: 20080821
  3. BLINDED VICRIVIROC [Suspect]
     Indication: HIV INFECTION
     Route: 048
     Dates: start: 20080805

REACTIONS (3)
  - IATROGENIC INJURY [None]
  - OVERDOSE [None]
  - RENAL FAILURE ACUTE [None]
